FAERS Safety Report 4722423-3 (Version None)
Quarter: 2005Q3

REPORT INFORMATION
  Report Type: 
  Country: None (occurrence: None)
  Receive Date: 20050722
  Receipt Date: 20050413
  Transmission Date: 20060218
  Serious: No
  Sender: FDA-Public Use
  Company Number: US-GLAXOSMITHKLINE-A0553996A

PATIENT
  Age: 74 Year
  Sex: Female

DRUGS (10)
  1. AVANDIA [Suspect]
     Dosage: 4MG PER DAY
     Route: 048
     Dates: start: 20050401
  2. GLUCOPHAGE [Concomitant]
  3. PREVACID [Concomitant]
  4. THYROID TAB [Concomitant]
  5. ANAPRIL [Concomitant]
  6. FUROSEMIDE [Concomitant]
  7. NITROSTAT [Concomitant]
  8. PROPRANOLOL [Concomitant]
  9. ASPIRIN [Concomitant]
  10. MULTI-VITAMIN [Concomitant]

REACTIONS (1)
  - BLOOD GLUCOSE INCREASED [None]
